FAERS Safety Report 10086825 (Version 2)
Quarter: 2014Q3

REPORT INFORMATION
  Report Type: Spontaneous
  Country: US (occurrence: US)
  Receive Date: 20140418
  Receipt Date: 20140911
  Transmission Date: 20150326
  Serious: Yes (Hospitalization)
  Sender: FDA-Public Use
  Company Number: US-GLAXOSMITHKLINE-A1069980A

PATIENT
  Age: 84 Year
  Sex: Male

DRUGS (1)
  1. PROMACTA [Suspect]
     Active Substance: ELTROMBOPAG OLAMINE
     Indication: THROMBOCYTOPENIA
     Dosage: 50MG PER DAY
     Route: 065

REACTIONS (4)
  - Cardiac failure congestive [Recovering/Resolving]
  - Immune thrombocytopenic purpura [Recovering/Resolving]
  - Fall [Recovering/Resolving]
  - Blood pressure abnormal [Recovering/Resolving]
